FAERS Safety Report 7436150-5 (Version None)
Quarter: 2011Q2

REPORT INFORMATION
  Report Type: 
  Country: None (occurrence: None)
  Receive Date: 20110425
  Receipt Date: 20110419
  Transmission Date: 20111010
  Serious: No
  Sender: FDA-Public Use
  Company Number: US-B.I. PHARMACEUTICALS,INC./RIDGEFIELD-2011-BP-00461BP

PATIENT
  Sex: Female

DRUGS (5)
  1. LISINOPRIL [Concomitant]
     Indication: HYPERTENSION
     Dosage: 40 MG
     Route: 048
  2. ASPIRIN [Concomitant]
     Indication: PROPHYLAXIS
     Dosage: 81 MG
     Route: 048
  3. LORAZEPAM [Concomitant]
     Indication: ANXIETY
     Dosage: 0.5 MG
     Route: 048
  4. PRILOSEC [Concomitant]
     Indication: REFLUX GASTRITIS
     Dosage: 20 MG
     Route: 048
  5. PRADAXA [Suspect]
     Indication: ATRIAL FIBRILLATION
     Dosage: 300 MG
     Route: 048
     Dates: start: 20101224

REACTIONS (3)
  - DYSPHAGIA [None]
  - URINARY TRACT INFECTION [None]
  - DYSPEPSIA [None]
